FAERS Safety Report 6896717-X (Version None)
Quarter: 2010Q3

REPORT INFORMATION
  Report Type: 
  Country: None (occurrence: None)
  Receive Date: 20100802
  Receipt Date: 20070205
  Transmission Date: 20110219
  Serious: Yes (Hospitalization)
  Sender: FDA-Public Use
  Company Number: US-PFIZER INC-2007001093

PATIENT
  Sex: Female
  Weight: 67 kg

DRUGS (17)
  1. LYRICA [Suspect]
     Indication: NEUROPATHY PERIPHERAL
     Route: 048
     Dates: start: 20061017, end: 20061107
  2. CYMBALTA [Concomitant]
  3. ACETYLSALICYLIC ACID SRT [Concomitant]
  4. OXYCODONE [Concomitant]
  5. PROMETHAZINE [Concomitant]
  6. LOPERAMIDE [Concomitant]
  7. APRESOLINE [Concomitant]
  8. ENALAPRIL [Concomitant]
  9. LEVOTHYROXINE SODIUM [Concomitant]
  10. TOPROL-XL [Concomitant]
  11. NORVASC [Concomitant]
  12. CLARITIN [Concomitant]
  13. PROTONIX [Concomitant]
  14. FUROSEMIDE [Concomitant]
  15. DICYCLOMINE [Concomitant]
  16. ACETAMINOPHEN AND HYDROCODONE BITARTRATE [Concomitant]
  17. METROGEL [Concomitant]

REACTIONS (5)
  - BLOOD CREATININE INCREASED [None]
  - BLOOD UREA INCREASED [None]
  - GAIT DISTURBANCE [None]
  - MYOCLONUS [None]
  - TREMOR [None]
